FAERS Safety Report 20775774 (Version 3)
Quarter: 2022Q2

REPORT INFORMATION
  Report Type: Report from Study
  Country: JP (occurrence: JP)
  Receive Date: 20220502
  Receipt Date: 20220525
  Transmission Date: 20220721
  Serious: Yes (Hospitalization)
  Sender: FDA-Public Use
  Company Number: JP-ONO-2022JP010835

PATIENT
  Age: 52 Year
  Sex: Male
  Weight: 60 kg

DRUGS (9)
  1. BMS-986310 [Suspect]
     Active Substance: BMS-986310
     Indication: Colorectal cancer
     Route: 048
     Dates: start: 20210908, end: 20220427
  2. OXALIPLATIN [Suspect]
     Active Substance: OXALIPLATIN
     Indication: Colorectal cancer
     Dosage: MOST RECENT DOSE RECEIVED ON 20-APR-2022 PRIOR TO EVENT ONSET.
     Route: 065
     Dates: start: 20210908, end: 20220427
  3. CAPECITABINE [Concomitant]
     Active Substance: CAPECITABINE
     Indication: Colorectal cancer
     Dosage: 1000 MG/M2, Q12H, 14 DAYS ADMINISTRATION, 7 DAYS WITHDRAWAL.
     Route: 065
     Dates: start: 20210908, end: 20220427
  4. CAPECITABINE [Concomitant]
     Active Substance: CAPECITABINE
  5. HERBALS [Concomitant]
     Active Substance: HERBALS
     Indication: Prophylaxis
     Dosage: 5 G, Q8H, BEFORE EVERY MEAL?FORMULATION: POWDER (EXCEPT [DPO]
     Route: 048
     Dates: start: 2021
  6. NEXIUM [Concomitant]
     Active Substance: ESOMEPRAZOLE MAGNESIUM
     Indication: Gastrooesophageal reflux prophylaxis
     Dosage: 20 MG, EVERYDAY, AFTER BREAKFAST
     Route: 048
     Dates: start: 2021
  7. MOSAPRIDE CITRATE [Concomitant]
     Active Substance: MOSAPRIDE CITRATE
     Indication: Prophylaxis
     Dosage: 5 MG, Q8H, AFTER EACH MEAL
     Route: 048
     Dates: start: 2021
  8. SODIUM FERROUS CITRATE [Concomitant]
     Active Substance: SODIUM FERROUS CITRATE
     Indication: Anaemia
     Dosage: 100 MG, Q12H, AFTER BREAKFAST AND DINNER
     Route: 048
     Dates: start: 2021
  9. BEVACIZUMAB [Concomitant]
     Active Substance: BEVACIZUMAB
     Indication: Colorectal cancer
     Dosage: 7.5 MG/KG, Q3W
     Route: 065
     Dates: start: 20210908, end: 20220427

REACTIONS (1)
  - Platelet count decreased [Recovering/Resolving]

NARRATIVE: CASE EVENT DATE: 20220422
